FAERS Safety Report 10388242 (Version 2)
Quarter: 2014Q3

REPORT INFORMATION
  Report Type: Spontaneous
  Country: US (occurrence: US)
  Receive Date: 20140815
  Receipt Date: 20140827
  Transmission Date: 20150326
  Serious: Yes (Other)
  Sender: FDA-Public Use
  Company Number: ALCN2014US004640

PATIENT
  Age: 90 Year
  Sex: Female

DRUGS (3)
  1. SIMBRINZA [Suspect]
     Active Substance: BRIMONIDINE TARTRATE\BRINZOLAMIDE
     Indication: GLAUCOMA
     Dosage: 1 GTT BID
     Route: 047
  2. PILOCARPINE HCL [Suspect]
     Active Substance: PILOCARPINE HYDROCHLORIDE
     Indication: GLAUCOMA
     Dosage: 1 GTT, TID
     Route: 047
  3. LUMIGAN [Concomitant]
     Active Substance: BIMATOPROST
     Indication: GLAUCOMA
     Dosage: 1 UNK, UNK
     Route: 047

REACTIONS (1)
  - Hallucination [Recovered/Resolved]

NARRATIVE: CASE EVENT DATE: 20140602
